FAERS Safety Report 5587413-X (Version None)
Quarter: 2007Q4

REPORT INFORMATION
  Report Type: 
  Country: None (occurrence: None)
  Receive Date: 20071205
  Receipt Date: 20070316
  Transmission Date: 20080405
  Serious: Yes (Other)
  Sender: FDA-Public Use
  Company Number: HQWYE042119MAR07

PATIENT
  Age: 35 Year
  Sex: Female

DRUGS (2)
  1. EFFEXOR XR [Suspect]
     Dosage: 225 MG 1X PER 1 DAY
     Dates: start: 20060801, end: 20070307
  2. EFFEXOR XR [Suspect]
     Dosage: 225 MG 1X PER 1 DAY
     Dates: start: 20070308, end: 20070316

REACTIONS (4)
  - HALLUCINATION [None]
  - HALLUCINATION, AUDITORY [None]
  - MANIA [None]
  - SUICIDAL IDEATION [None]
